FAERS Safety Report 4296601-4 (Version None)
Quarter: 2004Q1

REPORT INFORMATION
  Report Type: 
  Country: None (occurrence: None)
  Receive Date: 20040126
  Receipt Date: 20030902
  Transmission Date: 20041129
  Serious: No
  Sender: FDA-Public Use
  Company Number: USA030945969

PATIENT
  Age: 13 Year
  Sex: Female
  Weight: 60 kg

DRUGS (1)
  1. STRATTERA [Suspect]
     Indication: ATTENTION DEFICIT/HYPERACTIVITY DISORDER
     Dosage: 40MG/DAY
     Dates: start: 20030801, end: 20030829

REACTIONS (5)
  - DIZZINESS [None]
  - FATIGUE [None]
  - PALLOR [None]
  - SOMNOLENCE [None]
  - THIRST [None]
